FAERS Safety Report 9307007 (Version 1)
Quarter: 2013Q2

REPORT INFORMATION
  Report Type: Spontaneous
  Country: US (occurrence: US)
  Receive Date: 20130523
  Receipt Date: 20130523
  Transmission Date: 20140414
  Serious: No
  Sender: FDA-Public Use
  Company Number: US-009507513-1305USA013813

PATIENT
  Sex: Male

DRUGS (1)
  1. DR. SCHOLL^S ODOR DESTROYERS ALL DAY DEODORANT POWDER [Suspect]
     Indication: SKIN ODOUR ABNORMAL
     Dosage: UNK, UNKNOWN
     Route: 061

REACTIONS (1)
  - Drug ineffective [Unknown]
